FAERS Safety Report 6419052-2 (Version None)
Quarter: 2009Q4

REPORT INFORMATION
  Report Type: 
  Country: None (occurrence: None)
  Receive Date: 20091028
  Receipt Date: 20091028
  Transmission Date: 20100525
  Serious: Yes (Life-Threatening, Disabling)
  Sender: FDA-Public Use
  Company Number: None

PATIENT
  Age: 38 Year
  Sex: Male
  Weight: 111.1313 kg

DRUGS (1)
  1. PAROXETINE HCL [Suspect]
     Indication: STRESS
     Dosage: 20MG 1 TAB EVERY DAY PO
     Route: 048
     Dates: start: 20090608, end: 20090910

REACTIONS (13)
  - ABNORMAL BEHAVIOUR [None]
  - ANXIETY [None]
  - CHEST PAIN [None]
  - CONFUSIONAL STATE [None]
  - COORDINATION ABNORMAL [None]
  - EMOTIONAL DISTRESS [None]
  - HEART RATE INCREASED [None]
  - HYPERREFLEXIA [None]
  - INSOMNIA [None]
  - MEMORY IMPAIRMENT [None]
  - NERVE INJURY [None]
  - NERVOUSNESS [None]
  - TINNITUS [None]
